FAERS Safety Report 4942095-2 (Version None)
Quarter: 2006Q1

REPORT INFORMATION
  Report Type: 
  Country: None (occurrence: None)
  Receive Date: 20060313
  Receipt Date: 20050610
  Transmission Date: 20060701
  Serious: No
  Sender: FDA-Public Use
  Company Number: US-GLAXOSMITHKLINE-A0562187A

PATIENT
  Age: 30 Year

DRUGS (1)
  1. NICORETTE [Suspect]

REACTIONS (4)
  - ANXIETY [None]
  - DRUG INEFFECTIVE [None]
  - FACIAL PAIN [None]
  - GINGIVAL PAIN [None]
